FAERS Safety Report 6079081-8 (Version None)
Quarter: 2009Q1

REPORT INFORMATION
  Report Type: 
  Country: None (occurrence: None)
  Receive Date: 20090216
  Receipt Date: 20090209
  Transmission Date: 20090719
  Serious: Yes (Death)
  Sender: FDA-Public Use
  Company Number: JP-ASTRAZENECA-2009AP01165

PATIENT
  Sex: Male

DRUGS (6)
  1. SEROQUEL [Suspect]
     Indication: SCHIZOPHRENIA
     Route: 048
     Dates: start: 20061001
  2. RISPERDAL [Suspect]
     Route: 048
     Dates: start: 20040101
  3. SEPAZON [Concomitant]
     Route: 048
  4. AKINETON [Concomitant]
     Route: 048
  5. RIVOTRIL [Concomitant]
     Route: 048
  6. ROHYPNOL [Concomitant]
     Route: 048

REACTIONS (1)
  - DIABETIC COMA [None]
